FAERS Safety Report 11651503 (Version 1)
Quarter: 2015Q4

REPORT INFORMATION
  Report Type: Spontaneous
  Country: US (occurrence: None)
  Receive Date: 20151021
  Receipt Date: 20151021
  Transmission Date: 20160304
  Serious: Yes (Death, Hospitalization)
  Sender: FDA-Public Use
  Company Number: None

PATIENT
  Age: 81 Year
  Sex: Male
  Weight: 66 kg

DRUGS (2)
  1. TAXOL [Suspect]
     Active Substance: PACLITAXEL
     Dates: start: 20141121
  2. CARBOPLATIN. [Suspect]
     Active Substance: CARBOPLATIN
     Dates: start: 20141121

REACTIONS (9)
  - Pneumothorax [None]
  - Neutropenia [None]
  - Klebsiella test positive [None]
  - Septic shock [None]
  - Coma [None]
  - Cerebral infarction [None]
  - Respiratory distress [None]
  - Cardiac arrest [None]
  - Embolic stroke [None]

NARRATIVE: CASE EVENT DATE: 20141205
